FAERS Safety Report 6717295-1 (Version None)
Quarter: 2010Q2

REPORT INFORMATION
  Report Type: 
  Country: None (occurrence: None)
  Receive Date: 20100505
  Receipt Date: 20100426
  Transmission Date: 20101027
  Serious: Yes (Hospitalization, Other)
  Sender: FDA-Public Use
  Company Number: TCI2010A00646

PATIENT
  Age: 87 Year
  Sex: Female

DRUGS (8)
  1. LANSOPRAZOLE [Suspect]
     Indication: REFLUX OESOPHAGITIS
     Dosage: 15 MG (15 MG,1 IN 1 D) GASTROSTOMY TUBE
     Dates: start: 20090121, end: 20100220
  2. PROMAC D (POLAPREZINC) [Suspect]
     Indication: GASTRITIS
     Dosage: 1 GM (0.5 GM,2 IN 1 D) GASTROSTOMY TUBE
     Dates: start: 20090121, end: 20100222
  3. GASMOTIN (MOSAPRIDE CITRATE DEHYDRATE) [Concomitant]
  4. TWINLINE          (SOLUTIONS FOR PARENTERAL NUTRITION) [Concomitant]
  5. SODIUM CHLORIDE [Concomitant]
  6. PRIMPERAN TAB [Concomitant]
  7. MAGLAX (MAGNESIUM OXIDE) [Concomitant]
  8. MAGNESIUM OXIDE [Concomitant]

REACTIONS (6)
  - ANAEMIA [None]
  - GRANULOCYTOPENIA [None]
  - HAEMATURIA [None]
  - PNEUMONIA [None]
  - SEPSIS [None]
  - URINARY TRACT INFECTION [None]
